FAERS Safety Report 23807493 (Version 1)
Quarter: 2024Q2

REPORT INFORMATION
  Report Type: Spontaneous
  Country: FR (occurrence: FR)
  Receive Date: 20240502
  Receipt Date: 20240502
  Transmission Date: 20240716
  Serious: Yes (Hospitalization)
  Sender: FDA-Public Use
  Company Number: None

PATIENT
  Age: 71 Year
  Sex: Male
  Weight: 58 kg

DRUGS (10)
  1. APIXABAN [Suspect]
     Active Substance: APIXABAN
     Indication: Thrombosis
     Dates: start: 20240311, end: 20240315
  2. ATORVASTATIN [Concomitant]
     Active Substance: ATORVASTATIN
  3. NITROGLYCERIN [Concomitant]
     Active Substance: NITROGLYCERIN
  4. KARDEGIC [Concomitant]
     Active Substance: ASPIRIN DL-LYSINE
  5. BISOPROLOL [Concomitant]
     Active Substance: BISOPROLOL\BISOPROLOL FUMARATE
  6. LORAZEPAM [Concomitant]
     Active Substance: LORAZEPAM
  7. URSODIOL [Concomitant]
     Active Substance: URSODIOL
  8. VILANTEROL [Concomitant]
     Active Substance: VILANTEROL
  9. UMECLIDINIUM [Concomitant]
     Active Substance: UMECLIDINIUM
  10. APIXABAN [Suspect]
     Active Substance: APIXABAN
     Indication: Thrombosis
     Dates: start: 20231102, end: 20240209

REACTIONS (1)
  - Hepatic cytolysis [Recovering/Resolving]

NARRATIVE: CASE EVENT DATE: 20240315
